FAERS Safety Report 10382331 (Version 1)
Quarter: 2014Q3

REPORT INFORMATION
  Report Type: Spontaneous
  Country: US (occurrence: None)
  Receive Date: 20140811
  Receipt Date: 20140811
  Transmission Date: 20150326
  Serious: Yes (Death)
  Sender: FDA-Public Use
  Company Number: SYM-2014-23984

PATIENT
  Sex: Male

DRUGS (4)
  1. DUCOLAX (BISACODYL) [Concomitant]
  2. ATIVAN (LORAZEPAM)(LORAZEPAM) [Concomitant]
  3. ALBUTEROL (SALBUTAMOL) (SALBUTAMOL) [Concomitant]
  4. XENAZINE [Suspect]
     Active Substance: TETRABENAZINE
     Indication: HUNTINGTON^S DISEASE
     Route: 048

REACTIONS (1)
  - Death [None]
